FAERS Safety Report 8931627 (Version 1)
Quarter: 2012Q4

REPORT INFORMATION
  Report Type: Report from Study
  Country: US (occurrence: US)
  Receive Date: 20121128
  Receipt Date: 20121128
  Transmission Date: 20130627
  Serious: Yes (Hospitalization)
  Sender: FDA-Public Use
  Company Number: US-ROCHE-1156361

PATIENT
  Age: 72 Year
  Sex: Female
  Weight: 62.6 kg

DRUGS (5)
  1. BEVACIZUMAB [Suspect]
     Indication: BILE DUCT CANCER
     Route: 042
     Dates: start: 201204
  2. CAPECITABINE [Suspect]
     Indication: BILE DUCT CANCER
     Route: 048
  3. GEMCITABINE [Suspect]
     Indication: BILE DUCT CANCER
     Route: 042
     Dates: start: 201210
  4. LEVOTHYROXINE [Concomitant]
     Route: 048
  5. LORAZEPAM [Concomitant]
     Dosage: PRN
     Route: 048
     Dates: start: 20120417

REACTIONS (6)
  - Nausea [Unknown]
  - Alanine aminotransferase increased [Unknown]
  - Aspartate aminotransferase increased [Unknown]
  - Cholangitis [Unknown]
  - Disease progression [Unknown]
  - Hypercalcaemia [Unknown]
